FAERS Safety Report 8167607-X (Version None)
Quarter: 2012Q1

REPORT INFORMATION
  Report Type: 
  Country: None (occurrence: None)
  Receive Date: 20120227
  Receipt Date: 20120221
  Transmission Date: 20120608
  Serious: Yes (Hospitalization, Other)
  Sender: FDA-Public Use
  Company Number: US-PFIZER INC-2011199243

PATIENT
  Sex: Female

DRUGS (5)
  1. CHANTIX [Suspect]
     Indication: SMOKING CESSATION THERAPY
     Dosage: STARTING MONTH PACK
     Dates: start: 20090824, end: 20090916
  2. ALLEGRA [Concomitant]
     Indication: HYPERSENSITIVITY
     Dosage: UNK
     Dates: start: 20040101, end: 20100101
  3. SINGULAIR [Concomitant]
     Indication: DYSPNOEA
     Dosage: UNK
     Dates: start: 20010101, end: 20110101
  4. CLARITIN [Concomitant]
     Indication: HYPERSENSITIVITY
     Dosage: UNK
     Dates: start: 20010101
  5. CETIRIZINE [Concomitant]
     Indication: HYPERSENSITIVITY
     Dosage: UNK
     Dates: start: 20010101, end: 20100101

REACTIONS (14)
  - SUICIDE ATTEMPT [None]
  - ALCOHOL ABUSE [None]
  - PANIC ATTACK [None]
  - PARAESTHESIA [None]
  - DISTURBANCE IN ATTENTION [None]
  - INTENTIONAL OVERDOSE [None]
  - AMNESIA [None]
  - INSOMNIA [None]
  - ANXIETY [None]
  - NIGHTMARE [None]
  - DEPRESSION [None]
  - ABNORMAL DREAMS [None]
  - HALLUCINATION [None]
  - ATTENTION DEFICIT/HYPERACTIVITY DISORDER [None]
